FAERS Safety Report 4313057-3 (Version None)
Quarter: 2004Q1

REPORT INFORMATION
  Report Type: 
  Country: None (occurrence: None)
  Receive Date: 20040305
  Receipt Date: 20040305
  Transmission Date: 20041129
  Serious: Yes (Disabling)
  Sender: FDA-Public Use
  Company Number: None

PATIENT
  Age: 31 Year
  Sex: Male
  Weight: 68.0396 kg

DRUGS (3)
  1. EFFEXOR XR [Suspect]
     Indication: DEPRESSION
     Dosage: 37.5 MG DAY ORAL
     Route: 048
     Dates: start: 20040215, end: 20040221
  2. EFFEXOR XR [Suspect]
     Indication: DEPRESSION
     Dosage: 75 MG DAY ORAL
     Route: 048
     Dates: start: 20040222, end: 20040229
  3. . [Concomitant]

REACTIONS (5)
  - ACTIVITIES OF DAILY LIVING IMPAIRED [None]
  - CONFUSIONAL STATE [None]
  - NERVOUS SYSTEM DISORDER [None]
  - SENSORY DISTURBANCE [None]
  - TINNITUS [None]
